FAERS Safety Report 7382945-6 (Version None)
Quarter: 2011Q1

REPORT INFORMATION
  Report Type: 
  Country: None (occurrence: None)
  Receive Date: 20110325
  Receipt Date: 20110325
  Transmission Date: 20110831
  Serious: No
  Sender: FDA-Public Use
  Company Number: None

PATIENT
  Sex: Female
  Weight: 57.8336 kg

DRUGS (1)
  1. FLEBOGAMMA [Suspect]
     Indication: HYPOGAMMAGLOBULINAEMIA
     Dosage: 24GM TITRATION IV DRIP
     Route: 041

REACTIONS (4)
  - BACK PAIN [None]
  - ABDOMINAL PAIN [None]
  - HEADACHE [None]
  - INFUSION RELATED REACTION [None]
